FAERS Safety Report 14698614 (Version 2)
Quarter: 2018Q2

REPORT INFORMATION
  Report Type: Spontaneous
  Country: PL (occurrence: PL)
  Receive Date: 20180330
  Receipt Date: 20180618
  Transmission Date: 20180711
  Serious: Yes (Other)
  Sender: FDA-Public Use
  Company Number: PHHY2018PL049884

PATIENT
  Sex: Female

DRUGS (3)
  1. AMOXICILLIN + CLAVULANATE POTASSIUM [Suspect]
     Active Substance: AMOXICILLIN\CLAVULANATE POTASSIUM
     Indication: PRODUCT USED FOR UNKNOWN INDICATION
     Dosage: UNK
     Route: 065
     Dates: start: 20170501
  2. OXYTOCIN. [Suspect]
     Active Substance: OXYTOCIN
     Indication: PRODUCT USED FOR UNKNOWN INDICATION
     Dosage: UNK
     Route: 041
     Dates: start: 20170502
  3. DINOPROSTONE. [Suspect]
     Active Substance: DINOPROSTONE
     Indication: UTERINE HYPOTONUS
     Dosage: UNK
     Route: 019
     Dates: start: 20170503

REACTIONS (8)
  - Tachycardia foetal [Unknown]
  - Foetal heart rate deceleration abnormality [Unknown]
  - Pulse abnormal [Unknown]
  - Bradycardia [Unknown]
  - Uterine contractions during pregnancy [Unknown]
  - Maternal exposure during pregnancy [Unknown]
  - Heart rate abnormal [Unknown]
  - Uterine tachysystole [Unknown]
